FAERS Safety Report 13112178 (Version 1)
Quarter: 2017Q1

REPORT INFORMATION
  Report Type: Spontaneous
  Country: US (occurrence: US)
  Receive Date: 20170113
  Receipt Date: 20170113
  Transmission Date: 20170428
  Serious: No
  Sender: FDA-Public Use
  Company Number: US-009507513-1701USA002368

PATIENT
  Age: 33 Year
  Sex: Female
  Weight: 49.43 kg

DRUGS (2)
  1. NEXPLANON [Suspect]
     Active Substance: ETONOGESTREL
     Indication: CONTRACEPTION
     Dosage: 68MG/ 1 ROD EVERY THREE YEARS
     Route: 059
     Dates: start: 20161202, end: 20170103
  2. NEXPLANON [Suspect]
     Active Substance: ETONOGESTREL
     Dosage: 68MG/ 1 ROD EVERY THREE YEARS
     Route: 059
     Dates: start: 20170103

REACTIONS (2)
  - Implant site pain [Recovered/Resolved]
  - Migration of implanted drug [Recovered/Resolved]
